FAERS Safety Report 7818241-X (Version None)
Quarter: 2011Q4

REPORT INFORMATION
  Report Type: 
  Country: None (occurrence: None)
  Receive Date: 20111013
  Receipt Date: 20111005
  Transmission Date: 20120403
  Serious: Yes (Hospitalization)
  Sender: FDA-Public Use
  Company Number: WAES 1110FRA00022

PATIENT
  Age: 42 Year
  Sex: Male

DRUGS (5)
  1. TRUVADA [Concomitant]
  2. TAB RALTEGRAVIR POTASSIUM [Suspect]
     Indication: PROPHYLAXIS AGAINST HIV INFECTION
     Dosage: 400 MG/BID PO
     Route: 048
     Dates: start: 20110711, end: 20110809
  3. PRAZEPAM [Concomitant]
  4. RASILEZ [Concomitant]
  5. PANTOPRAZOLE SODIUM [Concomitant]

REACTIONS (1)
  - CARPAL TUNNEL SYNDROME [None]
